FAERS Safety Report 11442930 (Version 1)
Quarter: 2015Q3

REPORT INFORMATION
  Report Type: Spontaneous
  Country: US (occurrence: US)
  Receive Date: 20150901
  Receipt Date: 20150901
  Transmission Date: 20151125
  Serious: Yes (Hospitalization, Other)
  Sender: FDA-Public Use
  Company Number: US-ASTRAZENECA-2015SE81652

PATIENT
  Age: 41 Year
  Sex: Male

DRUGS (4)
  1. STEROID [Suspect]
     Active Substance: UNSPECIFIED INGREDIENT
     Route: 065
  2. HUMIRA [Suspect]
     Active Substance: ADALIMUMAB
     Indication: CROHN^S DISEASE
     Route: 065
     Dates: start: 2015
  3. ENTOCORT [Suspect]
     Active Substance: BUDESONIDE
     Route: 048
     Dates: start: 2013, end: 20150623
  4. HUMIRA [Suspect]
     Active Substance: ADALIMUMAB
     Indication: CROHN^S DISEASE
     Route: 065
     Dates: start: 20150519, end: 20150519

REACTIONS (10)
  - Gait disturbance [Unknown]
  - Nausea [Unknown]
  - Drug level decreased [Unknown]
  - Rash [Unknown]
  - Inappropriate schedule of drug administration [Unknown]
  - Amnesia [Unknown]
  - Tremor [Unknown]
  - Fatigue [Unknown]
  - Dizziness postural [Unknown]
  - Dizziness [Unknown]

NARRATIVE: CASE EVENT DATE: 2015
